FAERS Safety Report 25912411 (Version 1)
Quarter: 2025Q4

REPORT INFORMATION
  Report Type: Spontaneous
  Country: JP (occurrence: JP)
  Receive Date: 20251013
  Receipt Date: 20251013
  Transmission Date: 20260117
  Serious: Yes (Other)
  Sender: ALEXION PHARMACEUTICALS
  Company Number: JP-ASTRAZENECA-202510JPN006567JP

PATIENT
  Age: 75 Year
  Sex: Male

DRUGS (1)
  1. IMFINZI [Suspect]
     Active Substance: DURVALUMAB
     Indication: Bile duct cancer
     Dosage: UNK
     Route: 065

REACTIONS (7)
  - Neutrophil count decreased [Unknown]
  - Anaemia [Unknown]
  - Platelet count decreased [Unknown]
  - Aspartate aminotransferase increased [Unknown]
  - Rash [Unknown]
  - Hypothyroidism [Unknown]
  - Hyperthyroidism [Unknown]
